FAERS Safety Report 8427109-X (Version None)
Quarter: 2012Q2

REPORT INFORMATION
  Report Type: 
  Country: None (occurrence: None)
  Receive Date: 20120611
  Receipt Date: 20120509
  Transmission Date: 20120825
  Serious: Yes (Hospitalization, Other)
  Sender: FDA-Public Use
  Company Number: US-ROCHE-760840

PATIENT
  Sex: Female
  Weight: 79.45 kg

DRUGS (1)
  1. ACCUTANE [Suspect]
     Indication: ACNE
     Route: 065
     Dates: start: 19950701, end: 19951231

REACTIONS (8)
  - CHEST PAIN [None]
  - CROHN'S DISEASE [None]
  - DYSPNOEA [None]
  - PULMONARY EMBOLISM [None]
  - INFLAMMATORY BOWEL DISEASE [None]
  - DEEP VEIN THROMBOSIS [None]
  - BACK PAIN [None]
  - ANXIETY [None]
